FAERS Safety Report 6184110-7 (Version None)
Quarter: 2009Q2

REPORT INFORMATION
  Report Type: 
  Country: None (occurrence: None)
  Receive Date: 20090508
  Receipt Date: 20090428
  Transmission Date: 20091009
  Serious: Yes (Hospitalization, Other)
  Sender: FDA-Public Use
  Company Number: PHHY2009US16353

PATIENT
  Sex: Female

DRUGS (3)
  1. TEGRETOL [Suspect]
  2. BETASERON [Suspect]
     Indication: MULTIPLE SCLEROSIS
     Dosage: 8 MIU, UNK
     Route: 058
     Dates: start: 19940324
  3. HYDROCHLOROTHIAZIDE [Concomitant]
     Indication: OEDEMA PERIPHERAL

REACTIONS (5)
  - DEPRESSION [None]
  - FALL [None]
  - JOINT DISLOCATION [None]
  - MOBILITY DECREASED [None]
  - OEDEMA PERIPHERAL [None]
